FAERS Safety Report 15514904 (Version 5)
Quarter: 2022Q3

REPORT INFORMATION
  Report Type: Report from Study
  Country: CN (occurrence: None)
  Receive Date: 20181017
  Receipt Date: 20220708
  Transmission Date: 20221027
  Serious: Yes (Hospitalization)
  Sender: FDA-Public Use
  Company Number: CN-ROCHE-2197463

PATIENT
  Age: 64 Year
  Sex: Female
  Weight: 47 kg

DRUGS (31)
  1. ATEZOLIZUMAB [Suspect]
     Active Substance: ATEZOLIZUMAB
     Indication: Ovarian cancer
     Dosage: DATE OF MOST RECENT DOSE OF ATEZOLIZUMAB PRIOR TO AE ONSET 27/SEP/2018.
     Route: 042
     Dates: start: 20180906
  2. PACLITAXEL [Suspect]
     Active Substance: PACLITAXEL
     Indication: Ovarian cancer
     Dosage: DATE OF MOST RECENT DOSE (240 MG) OF PACLITAXEL PRIOR TO AE ONSET: 27/SEP/2018.
     Route: 042
     Dates: start: 20180906
  3. CARBOPLATIN [Suspect]
     Active Substance: CARBOPLATIN
     Indication: Ovarian cancer
     Dosage: AT A DOSE TO ACHIEVE A TARGET AREA UNDER THE CURVE (AUC) OF 6 MILLIGRAMS PER MILLILITER*MINUTE (MG/M
     Route: 042
     Dates: start: 20180906
  4. BEVACIZUMAB [Suspect]
     Active Substance: BEVACIZUMAB
     Indication: Ovarian cancer
     Dosage: DOSE AS PER PROTOCOL 15 MG/KG?DATE OF MOST RECENT DOSE OF BEVACIZUMAB PRIOR TO AE ONSET: 27/SEP/2018
     Route: 042
     Dates: start: 20180927
  5. HEPARIN SODIUM [Concomitant]
     Active Substance: HEPARIN SODIUM
     Dates: start: 20180905, end: 20180905
  6. LIDOCAINE HYDROCHLORIDE [Concomitant]
     Active Substance: LIDOCAINE HYDROCHLORIDE
     Dates: start: 20180905, end: 20180905
  7. ADRENALIN HYDROCHLORIDE [Concomitant]
     Dates: start: 20180905, end: 20180905
  8. DEXAMETHASONE ACETATE [Concomitant]
     Active Substance: DEXAMETHASONE ACETATE
     Indication: Hypersensitivity
     Route: 048
     Dates: start: 20180905, end: 20180905
  9. DEXAMETHASONE ACETATE [Concomitant]
     Active Substance: DEXAMETHASONE ACETATE
     Route: 048
     Dates: start: 20180926, end: 20180926
  10. LORATADINE [Concomitant]
     Active Substance: LORATADINE
     Indication: Hypersensitivity
     Dates: start: 20180906, end: 20180906
  11. LORATADINE [Concomitant]
     Active Substance: LORATADINE
     Dates: start: 20180927, end: 20180927
  12. CIMETIDINE [Concomitant]
     Active Substance: CIMETIDINE
     Dates: start: 20180906, end: 20180906
  13. CIMETIDINE [Concomitant]
     Active Substance: CIMETIDINE
     Dates: start: 20180927, end: 20180927
  14. DEXAMETHASONE SODIUM PHOSPHATE [Concomitant]
     Active Substance: DEXAMETHASONE SODIUM PHOSPHATE
     Route: 042
     Dates: start: 20180906, end: 20180906
  15. DEXAMETHASONE SODIUM PHOSPHATE [Concomitant]
     Active Substance: DEXAMETHASONE SODIUM PHOSPHATE
     Route: 042
     Dates: start: 20180927, end: 20180927
  16. PALONOSETRON [Concomitant]
     Active Substance: PALONOSETRON
     Indication: Vomiting
     Dates: start: 20180906, end: 20180906
  17. PALONOSETRON [Concomitant]
     Active Substance: PALONOSETRON
     Dates: start: 20180927, end: 20180927
  18. FUROSEMIDE [Concomitant]
     Active Substance: FUROSEMIDE
     Indication: Polyuria
     Dates: start: 20180906, end: 20180907
  19. FUROSEMIDE [Concomitant]
     Active Substance: FUROSEMIDE
     Dates: start: 20180927, end: 20180928
  20. OMEPRAZOLE SODIUM [Concomitant]
     Active Substance: OMEPRAZOLE SODIUM
     Dates: start: 20180906, end: 20180909
  21. OMEPRAZOLE SODIUM [Concomitant]
     Active Substance: OMEPRAZOLE SODIUM
     Dates: start: 20180926, end: 20181003
  22. GLUTATHIONE REDUCED [Concomitant]
     Dates: start: 20180906, end: 20180909
  23. GLUTATHIONE REDUCED [Concomitant]
     Dates: start: 20180927, end: 20181003
  24. FUROSEMIDE [Concomitant]
     Active Substance: FUROSEMIDE
     Indication: Polyuria
     Dates: start: 20180927, end: 20180928
  25. SORBITOL [Concomitant]
     Active Substance: SORBITOL
     Indication: Constipation
     Dates: start: 20180928, end: 20180928
  26. SORBITOL [Concomitant]
     Active Substance: SORBITOL
     Dates: start: 20180930, end: 20180930
  27. HYDROTALCITE [Concomitant]
     Active Substance: HYDROTALCITE
     Dates: start: 20180929, end: 20181019
  28. CANNABIS SATIVA SEED\HERBALS [Concomitant]
     Active Substance: CANNABIS SATIVA SEED\HERBALS
     Dates: start: 20180930, end: 20190125
  29. DEXTROSE\SODIUM CHLORIDE [Concomitant]
     Active Substance: DEXTROSE\SODIUM CHLORIDE
     Dates: start: 20180905, end: 20180906
  30. RABEPRAZOLE [Concomitant]
     Active Substance: RABEPRAZOLE
     Dates: start: 20180915, end: 20180922
  31. LEUCOGEN [Concomitant]
     Active Substance: LEUCOGEN
     Dates: start: 20180915, end: 20180920

REACTIONS (1)
  - Neutrophil count decreased [Recovered/Resolved]

NARRATIVE: CASE EVENT DATE: 20181004
